FAERS Safety Report 11045980 (Version 1)
Quarter: 2015Q2

REPORT INFORMATION
  Report Type: Spontaneous
  Country: US (occurrence: US)
  Receive Date: 20150417
  Receipt Date: 20150417
  Transmission Date: 20150821
  Serious: Yes (Life-Threatening, Hospitalization, Other)
  Sender: FDA-Public Use
  Company Number: US-JNJFOC-20150300737

PATIENT
  Age: 43 Year
  Sex: Female

DRUGS (4)
  1. PREDNISONE. [Concomitant]
     Active Substance: PREDNISONE
     Indication: IMMUNE TOLERANCE INDUCTION
     Route: 048
  2. IBUPROFEN. [Suspect]
     Active Substance: IBUPROFEN
     Indication: IMMUNE TOLERANCE INDUCTION
     Route: 048
  3. IBUPROFEN. [Suspect]
     Active Substance: IBUPROFEN
     Indication: IMMUNE TOLERANCE INDUCTION
     Route: 048
  4. IBUPROFEN. [Suspect]
     Active Substance: IBUPROFEN
     Indication: IMMUNE TOLERANCE INDUCTION
     Route: 048
     Dates: end: 201310

REACTIONS (3)
  - Hypoxia [Recovering/Resolving]
  - Respiratory distress [Recovering/Resolving]
  - Cough [Recovering/Resolving]
